FAERS Safety Report 9838618 (Version 1)
Quarter: 2014Q1

REPORT INFORMATION
  Report Type: Spontaneous
  Country: BR (occurrence: None)
  Receive Date: 20140116
  Receipt Date: 20140116
  Transmission Date: 20141002
  Serious: Yes (Hospitalization, Other)
  Sender: FDA-Public Use
  Company Number: DSJ-2014-00203

PATIENT
  Age: 7 Decade
  Sex: 0
  Weight: 78 kg

DRUGS (5)
  1. BENICAR [Suspect]
     Indication: HYPERTENSION
     Dosage: 40 MG (1 IN 1 D), PER ORAL
     Route: 048
  2. MORPHINE [Suspect]
     Indication: ABDOMINAL PAIN UPPER
     Dosage: DOSE UNKNOWN, PER ORAL
     Route: 048
     Dates: start: 201311
  3. LANZOPRAZOLE [Concomitant]
  4. ALUMINUM HYDROXIDE (ALUMINUM HYDROXIDE) (ALUMINUM HYDROXIDE) [Concomitant]
  5. MEDICINES FOR SMALL FATTY DEPOSITS IN LESS THAN 30% OF THE BRAI [Suspect]

REACTIONS (9)
  - Obesity [None]
  - Blood glucose increased [None]
  - Paraesthesia [None]
  - Abdominal pain upper [None]
  - Weight decreased [None]
  - Aortic disorder [None]
  - Pancreatic neoplasm [None]
  - Pallor [None]
  - Pain in extremity [None]
